FAERS Safety Report 17853741 (Version 3)
Quarter: 2022Q3

REPORT INFORMATION
  Report Type: Report from Study
  Country: JP (occurrence: JP)
  Receive Date: 20200603
  Receipt Date: 20220919
  Transmission Date: 20221027
  Serious: Yes (Other)
  Sender: FDA-Public Use
  Company Number: JP-ONO-2020JP012718

PATIENT
  Age: 32 Year
  Sex: Male
  Weight: 68.1 kg

DRUGS (14)
  1. ETELCALCETIDE [Suspect]
     Active Substance: ETELCALCETIDE
     Indication: Hyperparathyroidism secondary
     Dosage: 5 MILLIGRAM, Q56H
     Route: 010
     Dates: start: 20180727
  2. DARBEPOETIN ALFA [Concomitant]
     Active Substance: DARBEPOETIN ALFA
     Dosage: 30 MICROGRAM, QWK
     Route: 065
     Dates: end: 20180706
  3. DARBEPOETIN ALFA [Concomitant]
     Active Substance: DARBEPOETIN ALFA
     Dosage: 20 MICROGRAM, QWK
     Route: 065
     Dates: start: 20180713, end: 20180803
  4. DARBEPOETIN ALFA [Concomitant]
     Active Substance: DARBEPOETIN ALFA
     Dosage: 15 MICROGRAM, QWK
     Route: 065
     Dates: start: 20180810, end: 20180907
  5. DARBEPOETIN ALFA [Concomitant]
     Active Substance: DARBEPOETIN ALFA
     Dosage: 20 MICROGRAM, QWK
     Route: 065
     Dates: start: 20180914
  6. OXAROL [Concomitant]
     Active Substance: MAXACALCITOL
     Dosage: 7.5 MICROGRAM, Q84H
     Route: 065
     Dates: start: 20180227, end: 20180523
  7. OXAROL [Concomitant]
     Active Substance: MAXACALCITOL
     Dosage: 10 MICROGRAM, QWK
     Route: 065
     Dates: start: 20180227, end: 20180523
  8. OXAROL [Concomitant]
     Active Substance: MAXACALCITOL
     Dosage: 7.5 MICROGRAM, Q56H
     Route: 065
     Dates: start: 20180525, end: 20180606
  9. OXAROL [Concomitant]
     Active Substance: MAXACALCITOL
     Dosage: 7.5 MICROGRAM, Q84H
     Route: 065
     Dates: start: 20180608
  10. OXAROL [Concomitant]
     Active Substance: MAXACALCITOL
     Dosage: 5 MICROGRAM, QWK
     Route: 065
     Dates: start: 20180608
  11. BIXALOMER [Concomitant]
     Active Substance: BIXALOMER
     Dosage: 2250 MILLIGRAM, QD
     Route: 048
  12. P-tol [Concomitant]
     Dosage: 750 MILLIGRAM, QD
     Route: 065
     Dates: end: 20180822
  13. P-tol [Concomitant]
     Dosage: 1500 MILLIGRAM, QD
     Route: 065
     Dates: start: 20180823, end: 20181116
  14. P-tol [Concomitant]
     Dosage: 750 MILLIGRAM, QD
     Route: 065
     Dates: start: 20181117

REACTIONS (1)
  - Shunt occlusion [Recovered/Resolved]

NARRATIVE: CASE EVENT DATE: 20190719
